FAERS Safety Report 9557771 (Version 5)
Quarter: 2014Q4

REPORT INFORMATION
  Report Type: Spontaneous
  Country: JP (occurrence: JP)
  Receive Date: 20130926
  Receipt Date: 20141217
  Transmission Date: 20150529
  Serious: Yes (Other)
  Sender: FDA-Public Use
  Company Number: PHHY2013JP105151

PATIENT
  Age: 80 Year
  Sex: Female
  Weight: 55 kg

DRUGS (6)
  1. PREGABALIN. [Concomitant]
     Active Substance: PREGABALIN
     Indication: LUMBAR SPINAL STENOSIS
     Dosage: 150 MG, QD
     Route: 048
  2. GOREI-SAN [Concomitant]
     Active Substance: HERBALS
     Indication: FACIAL PAIN
     Route: 065
  3. BACLOFEN. [Suspect]
     Active Substance: BACLOFEN
     Dosage: 15 MG, UNK
     Route: 048
  4. CARBAMAZEPINE. [Suspect]
     Active Substance: CARBAMAZEPINE
     Indication: FACIAL PAIN
     Route: 048
  5. BACLOFEN. [Suspect]
     Active Substance: BACLOFEN
     Indication: FACIAL PAIN
     Dosage: 10 MG, QD
     Route: 065
  6. BACLOFEN. [Suspect]
     Active Substance: BACLOFEN
     Dosage: 15 MG, UNK
     Route: 048

REACTIONS (4)
  - Trigeminal neuralgia [Recovered/Resolved]
  - Facial pain [Recovered/Resolved]
  - Somnolence [Unknown]
  - Drug eruption [Recovering/Resolving]
